FAERS Safety Report 12420725 (Version 3)
Quarter: 2016Q2

REPORT INFORMATION
  Report Type: Spontaneous
  Country: US (occurrence: US)
  Receive Date: 20160531
  Receipt Date: 20160628
  Transmission Date: 20160815
  Serious: Yes (Hospitalization, Other)
  Sender: FDA-Public Use
  Company Number: US-SMITH AND NEPHEW, INC-2016SMT00427

PATIENT
  Age: 69 Year
  Sex: Male
  Weight: 68.27 kg

DRUGS (7)
  1. TRADJENTA [Concomitant]
     Active Substance: LINAGLIPTIN
  2. REGRANEX [Suspect]
     Active Substance: BECAPLERMIN
     Indication: WOUND
     Dosage: UNK, 1X/DAY
     Route: 061
     Dates: start: 20160413, end: 20160429
  3. CITRACAL [Concomitant]
     Active Substance: CALCIUM CITRATE
  4. ASPIRIN. [Concomitant]
     Active Substance: ASPIRIN
     Dosage: 325 MG, 1X/DAY
  5. NORCO [Concomitant]
     Active Substance: ACETAMINOPHEN\HYDROCODONE BITARTRATE
     Dosage: UNK, AS NEEDED
  6. OXYCONTIN [Concomitant]
     Active Substance: OXYCODONE HYDROCHLORIDE
     Indication: PAIN
  7. MEGA RED VITAMIN SUPPLEMENT KRILL OIL [Concomitant]

REACTIONS (7)
  - Arterial occlusive disease [Unknown]
  - Application site scab [Unknown]
  - Wound complication [Unknown]
  - Anaemia [Unknown]
  - Fluid replacement [Unknown]
  - Dry gangrene [Unknown]
  - Pain in extremity [Unknown]

NARRATIVE: CASE EVENT DATE: 2016
